FAERS Safety Report 5886934-X (Version None)
Quarter: 2008Q3

REPORT INFORMATION
  Report Type: 
  Country: None (occurrence: None)
  Receive Date: 20080917
  Receipt Date: 20080904
  Transmission Date: 20090109
  Serious: Yes (Other)
  Sender: FDA-Public Use
  Company Number: AU-ELI_LILLY_AND_COMPANY-AU200809002360

PATIENT
  Age: 66 Year
  Sex: Female

DRUGS (7)
  1. ZYPREXA [Suspect]
     Indication: DEMENTIA ALZHEIMER'S TYPE
     Dosage: 15 MG, DAILY (1/D)
  2. RISPERIDONE [Concomitant]
     Indication: DEMENTIA ALZHEIMER'S TYPE
     Dosage: 2 MG, DAILY (1/D)
  3. RISPERIDONE [Concomitant]
     Dosage: 4 MG, DAILY (1/D)
  4. DONEPEZIL HCL [Concomitant]
     Indication: DEMENTIA ALZHEIMER'S TYPE
     Dosage: 5 MG, DAILY (1/D)
  5. DONEPEZIL HCL [Concomitant]
     Dosage: 10 MG, DAILY (1/D)
  6. BENZTROPINE MESYLATE [Concomitant]
     Indication: PARKINSONISM
     Dosage: UNK, UNKNOWN
  7. HYPNOTICS AND SEDATIVES [Concomitant]
     Indication: INSOMNIA
     Dosage: UNK, UNKNOWN

REACTIONS (2)
  - CATATONIA [None]
  - NEUROLEPTIC MALIGNANT SYNDROME [None]
